FAERS Safety Report 4785868-1 (Version None)
Quarter: 2005Q3

REPORT INFORMATION
  Report Type: 
  Country: None (occurrence: None)
  Receive Date: 20050930
  Receipt Date: 20050202
  Transmission Date: 20060218
  Serious: Yes (Hospitalization)
  Sender: FDA-Public Use
  Company Number: 2005FR-00309

PATIENT
  Age: 65 Year
  Sex: Female

DRUGS (7)
  1. FLUOXETINE [Suspect]
     Indication: DEPRESSION
     Dosage: 20 MG ORAL
     Route: 048
     Dates: start: 19970101, end: 20041229
  2. CYCLIZINE [Suspect]
     Indication: NAUSEA
     Dosage: 50 MG ORAL
     Route: 048
     Dates: start: 20041224, end: 20041229
  3. CIPROFLOXACIN [Concomitant]
  4. ASPIRIN [Concomitant]
  5. PROPANTHELINE [Concomitant]
  6. OXYBUTYNIN [Concomitant]
  7. MOVICOL [Concomitant]

REACTIONS (2)
  - CHOREA [None]
  - DYSTONIA [None]
